FAERS Safety Report 8178801-6 (Version None)
Quarter: 2012Q1

REPORT INFORMATION
  Report Type: 
  Country: None (occurrence: None)
  Receive Date: 20120301
  Receipt Date: 20120217
  Transmission Date: 20120608
  Serious: Yes (Other)
  Sender: FDA-Public Use
  Company Number: GB-MYLANLABS-2012S1003606

PATIENT
  Age: 14 Year
  Sex: Female
  Weight: 53.6 kg

DRUGS (3)
  1. LORATADINE [Concomitant]
     Indication: PRODUCT USED FOR UNKNOWN INDICATION
  2. MELATONIN [Concomitant]
     Indication: PRODUCT USED FOR UNKNOWN INDICATION
  3. SERTRALINE HYDROCHLORIDE [Suspect]
     Indication: ASPERGER'S DISORDER
     Route: 048
     Dates: start: 20111111, end: 20111129

REACTIONS (8)
  - FEELING DRUNK [None]
  - CEREBELLAR ATAXIA [None]
  - SYNCOPE [None]
  - PARAESTHESIA ORAL [None]
  - DIZZINESS [None]
  - GAIT DISTURBANCE [None]
  - HYPOAESTHESIA [None]
  - TINNITUS [None]
